FAERS Safety Report 17373036 (Version 2)
Quarter: 2020Q1

REPORT INFORMATION
  Report Type: Spontaneous
  Country: JP (occurrence: JP)
  Receive Date: 20200205
  Receipt Date: 20200227
  Transmission Date: 20200409
  Serious: Yes (Death, Other)
  Sender: FDA-Public Use
  Company Number: NVSJ2020JP001414

PATIENT
  Age: 85 Year
  Sex: Male

DRUGS (1)
  1. COSENTYX [Suspect]
     Active Substance: SECUKINUMAB
     Indication: PUSTULAR PSORIASIS
     Dosage: 300 MG
     Route: 058
     Dates: start: 201604, end: 201908

REACTIONS (6)
  - Myelodysplastic syndrome [Fatal]
  - Dermatitis exfoliative generalised [Recovered/Resolved]
  - Eosinophil count increased [Recovering/Resolving]
  - Erythema [Recovering/Resolving]
  - Concomitant disease progression [Fatal]
  - Oedema [Recovering/Resolving]

NARRATIVE: CASE EVENT DATE: 201604
